FAERS Safety Report 5049701-5 (Version None)
Quarter: 2006Q3

REPORT INFORMATION
  Report Type: 
  Country: None (occurrence: None)
  Receive Date: 20060707
  Receipt Date: 20060621
  Transmission Date: 20061208
  Serious: Yes (Hospitalization)
  Sender: FDA-Public Use
  Company Number: US-2006-013530

PATIENT
  Age: 59 Year
  Sex: Female
  Weight: 47 kg

DRUGS (2)
  1. BETASERON [Suspect]
     Indication: MULTIPLE SCLEROSIS
     Dosage: 9 MIU, EVERY 2D; SUBCUTANEOUS
     Route: 058
     Dates: start: 20010101
  2. CORTICOSTEROIDS [Concomitant]

REACTIONS (2)
  - CYSTITIS [None]
  - WEIGHT DECREASED [None]
